FAERS Safety Report 8806039 (Version 1)
Quarter: 2012Q4

REPORT INFORMATION
  Report Type: 
  Country: US (occurrence: US)
  Receive Date: 20120925
  Receipt Date: 20120925
  Transmission Date: 20130627
  Serious: No
  Sender: FDA-Public Use
  Company Number: US-PFIZER INC-2012235094

PATIENT
  Age: 47 Year
  Sex: Female
  Weight: 48 kg

DRUGS (3)
  1. PROTONIX [Suspect]
     Indication: GASTROOESOPHAGEAL REFLUX DISEASE
     Dosage: 40 mg, 2x/day
  2. TOPAMAX [Concomitant]
     Indication: MIGRAINE
     Dosage: 200 mg, 2x/day
  3. ATENOLOL [Concomitant]
     Indication: MIGRAINE
     Dosage: 50 mg in morning and 25 mg at night, 2x/day

REACTIONS (3)
  - Asthma [Unknown]
  - Nausea [Not Recovered/Not Resolved]
  - Vomiting [Not Recovered/Not Resolved]
